FAERS Safety Report 4779790-4 (Version None)
Quarter: 2005Q3

REPORT INFORMATION
  Report Type: 
  Country: None (occurrence: None)
  Receive Date: 20050914
  Receipt Date: 20040901
  Transmission Date: 20060218
  Serious: Yes (Death, Hospitalization)
  Sender: FDA-Public Use
  Company Number: 163-20785-03120257

PATIENT
  Age: 17 Year
  Sex: Male

DRUGS (10)
  1. THALOMID [Suspect]
     Indication: BRAIN NEOPLASM
     Dosage: 400 MG - 800 MG, DAILY, ORAL
     Route: 048
     Dates: start: 20030723, end: 20040801
  2. CYTOXAN [Concomitant]
  3. ETOPOSIDE [Concomitant]
  4. ONDANSETRON (ONDANSETRON) [Concomitant]
  5. KEPPRA [Concomitant]
  6. NEUPOGEN [Concomitant]
  7. COLACE (DOCUSATE SODIUM) [Concomitant]
  8. CELEBREX [Concomitant]
  9. RANITIDINE [Concomitant]
  10. PENTAMIDINE (PENTAMIDINE) [Concomitant]

REACTIONS (15)
  - CONFUSIONAL STATE [None]
  - CONVULSION [None]
  - COORDINATION ABNORMAL [None]
  - COUGH [None]
  - DEATH [None]
  - DISEASE PROGRESSION [None]
  - DYSARTHRIA [None]
  - FACIAL PALSY [None]
  - HEMIPARESIS [None]
  - NEUTROPENIA [None]
  - ORAL PAIN [None]
  - PANCYTOPENIA [None]
  - PYREXIA [None]
  - STOMATITIS [None]
  - TRANSIENT ISCHAEMIC ATTACK [None]
